FAERS Safety Report 16642509 (Version 1)
Quarter: 2019Q3

REPORT INFORMATION
  Report Type: Spontaneous
  Country: US (occurrence: US)
  Receive Date: 20190729
  Receipt Date: 20190729
  Transmission Date: 20191004
  Serious: No
  Sender: FDA-Public Use
  Company Number: US-PFIZER INC-2019319043

PATIENT
  Age: 50 Year
  Sex: Female
  Weight: 52.16 kg

DRUGS (1)
  1. GABAPENTIN. [Suspect]
     Active Substance: GABAPENTIN
     Indication: PAIN
     Dosage: 50 MG, (OPENS THE 100 MG CAPSULES, POURS OUT HALF OF THE POWDER, TAKES THEM FOR 50MG DOSE BY MOUTH)
     Route: 048
     Dates: start: 20190713

REACTIONS (5)
  - Malaise [Unknown]
  - Product use in unapproved indication [Unknown]
  - Wrong technique in product usage process [Unknown]
  - Off label use [Unknown]
  - Intentional product misuse [Unknown]
